FAERS Safety Report 24585635 (Version 2)
Quarter: 2025Q2

REPORT INFORMATION
  Report Type: Report from Study
  Country: US (occurrence: US)
  Receive Date: 20241106
  Receipt Date: 20250401
  Transmission Date: 20250716
  Serious: No
  Sender: SUNOVION
  Company Number: US-SUMITOMO PHARMA SWITZERLAND GMBH-2024SPA004701

PATIENT

DRUGS (13)
  1. ORGOVYX [Suspect]
     Active Substance: RELUGOLIX
     Indication: Prostate cancer
     Dosage: 360 MG, SINGLE
     Route: 048
  2. ORGOVYX [Suspect]
     Active Substance: RELUGOLIX
     Dosage: 120 MG, QD
     Route: 048
     Dates: start: 20241026
  3. CALCIUM CARBONATE\CHOLECALCIFEROL [Concomitant]
     Active Substance: CALCIUM CARBONATE\CHOLECALCIFEROL
     Route: 065
  4. NIFEDIPINE [Concomitant]
     Active Substance: NIFEDIPINE
     Route: 065
  5. NITROSTAT [Concomitant]
     Active Substance: NITROGLYCERIN
     Route: 065
  6. ALTACE [Concomitant]
     Active Substance: RAMIPRIL
     Route: 065
  7. XARELTO [Concomitant]
     Active Substance: RIVAROXABAN
     Route: 065
  8. SOTALOL [Concomitant]
     Active Substance: SOTALOL
     Route: 065
  9. LYCOPENE [Concomitant]
     Active Substance: LYCOPENE
     Route: 065
  10. VITAMINS [Concomitant]
     Active Substance: VITAMINS
     Route: 065
  11. CALCIUM CITRATE\CHOLECALCIFEROL [Concomitant]
     Active Substance: CALCIUM CITRATE\CHOLECALCIFEROL
     Route: 065
  12. CALCIUM [Concomitant]
     Active Substance: CALCIUM
     Route: 065
  13. VITAMIN D [Concomitant]
     Active Substance: VITAMIN D NOS
     Route: 065

REACTIONS (5)
  - Night sweats [Recovering/Resolving]
  - Abdominal pain upper [Recovering/Resolving]
  - Hot flush [Unknown]
  - Fatigue [Not Recovered/Not Resolved]
  - Therapy interrupted [Unknown]
